FAERS Safety Report 8543946-5 (Version None)
Quarter: 2012Q3

REPORT INFORMATION
  Report Type: 
  Country: None (occurrence: None)
  Receive Date: 20120717
  Receipt Date: 20120706
  Transmission Date: 20120928
  Serious: Yes (Hospitalization, Other)
  Sender: FDA-Public Use
  Company Number: 2012-3156

PATIENT
  Age: 59 Year
  Sex: Female
  Weight: 99.8 kg

DRUGS (5)
  1. FUROSEMIDE [Concomitant]
  2. SOMATULINE DEPOT [Suspect]
  3. SOMATULINE DEPOT [Suspect]
     Indication: ACROMEGALY
     Dosage: 60 MG, ONCE EVERY 28 DAYS (60 MG, 1 IN 28 D), SUBCUTANEOUS
     Dates: start: 20110501
  4. UNSPECIFIED BETA BLOCKER (BETA BLOCKING AGENTS) [Concomitant]
  5. ULORIC [Concomitant]

REACTIONS (7)
  - HOT FLUSH [None]
  - MUSCLE SPASMS [None]
  - RENAL CANCER [None]
  - DIZZINESS [None]
  - BLOOD GLUCOSE DECREASED [None]
  - NAUSEA [None]
  - ALOPECIA [None]
